FAERS Safety Report 4503225-X (Version None)
Quarter: 2004Q4

REPORT INFORMATION
  Report Type: 
  Country: None (occurrence: None)
  Receive Date: 20041112
  Receipt Date: 20041026
  Transmission Date: 20050328
  Serious: Yes (Hospitalization)
  Sender: FDA-Public Use
  Company Number: DSA_70504_2004

PATIENT
  Age: 27 Year
  Sex: Male

DRUGS (2)
  1. AZATHIOPRINE [Suspect]
     Indication: COLITIS ULCERATIVE
     Dosage: DF
  2. CYCLOSPORIN [Concomitant]

REACTIONS (10)
  - ARTHRALGIA [None]
  - DRUG HYPERSENSITIVITY [None]
  - LEUKOCYTOSIS [None]
  - LYMPHOPENIA [None]
  - MALAISE [None]
  - NASAL CONGESTION [None]
  - ODYNOPHAGIA [None]
  - PANCREATITIS [None]
  - UVEITIS [None]
  - VIRAL INFECTION [None]
